FAERS Safety Report 5983116-8 (Version None)
Quarter: 2008Q4

REPORT INFORMATION
  Report Type: 
  Country: None (occurrence: None)
  Receive Date: 20081208
  Receipt Date: 20081126
  Transmission Date: 20090506
  Serious: Yes (Hospitalization)
  Sender: FDA-Public Use
  Company Number: IT-TEVA-181671ISR

PATIENT
  Sex: Female

DRUGS (1)
  1. CISPLATIN [Suspect]

REACTIONS (1)
  - INTERSTITIAL LUNG DISEASE [None]
